FAERS Safety Report 20430132 (Version 1)
Quarter: 2022Q1

REPORT INFORMATION
  Report Type: Report from Study
  Country: FR (occurrence: FR)
  Receive Date: 20220204
  Receipt Date: 20220204
  Transmission Date: 20220423
  Serious: Yes (Hospitalization)
  Sender: FDA-Public Use
  Company Number: FR-SERVIER-S20003797

PATIENT

DRUGS (7)
  1. ONCASPAR [Suspect]
     Active Substance: PEGASPARGASE
     Indication: Acute lymphocytic leukaemia
     Dosage: 1800 IU, DAY 4
     Route: 042
     Dates: start: 20190110, end: 20190110
  2. DEXAMETHASONE [Suspect]
     Active Substance: DEXAMETHASONE
     Indication: Acute lymphocytic leukaemia
     Dosage: 6 MG, DAY 1 TO DAY 7, DAY15 TO DAY 21),
     Route: 048
     Dates: start: 20190107, end: 20190128
  3. VINCRISTINE SULFATE [Suspect]
     Active Substance: VINCRISTINE SULFATE
     Indication: Acute lymphocytic leukaemia
     Dosage: 1 MG, DAY 1, DAY 8, DAY 15 AND DAY 22
     Route: 042
     Dates: start: 20190107, end: 20190129
  4. DOXORUBICIN [Suspect]
     Active Substance: DOXORUBICIN
     Indication: Acute lymphocytic leukaemia
     Dosage: 21 MG, DAY 1, DAY 8, DAY 15 AND DAY 22
     Route: 042
     Dates: start: 20190107, end: 20190129
  5. METHOTREXATE [Suspect]
     Active Substance: METHOTREXATE
     Indication: Acute lymphocytic leukaemia
     Dosage: 12 MG, DAY 4
     Route: 037
     Dates: start: 20190110
  6. CYTARABINE [Suspect]
     Active Substance: CYTARABINE
     Indication: Acute lymphocytic leukaemia
     Dosage: 30 MG, DAY 4
     Route: 037
     Dates: start: 20190110
  7. HYDROCORTISONE BUTYRATE [Suspect]
     Active Substance: HYDROCORTISONE BUTYRATE
     Indication: Acute lymphocytic leukaemia
     Dosage: 15 MG, DAY 4
     Dates: start: 20190110

REACTIONS (2)
  - Febrile bone marrow aplasia [Recovered/Resolved]
  - Viral infection [Recovered/Resolved]

NARRATIVE: CASE EVENT DATE: 20190119
